FAERS Safety Report 8997926 (Version 2)
Quarter: 2013Q1

REPORT INFORMATION
  Report Type: Report from Study
  Country: DE (occurrence: DE)
  Receive Date: 20130104
  Receipt Date: 20130125
  Transmission Date: 20140127
  Serious: Yes (Other)
  Sender: FDA-Public Use
  Company Number: DE-ROCHE-1174440

PATIENT
  Age: 67 Year
  Sex: Female

DRUGS (3)
  1. ALTEPLASE [Suspect]
     Indication: MYOCARDIAL INFARCTION
     Dosage: 4 HOURS AFTER THE ONSET OF CHEST PAIN, 6-MG BOLUS, 54 MG OVER THE FIRST HOUR,20 MG OVER THE SECOND H
     Route: 042
  2. HEPARIN [Concomitant]
     Route: 040
  3. HEPARIN [Concomitant]
     Dosage: INFUSION AT A RATE OF 1000 UNITS/H.
     Route: 042

REACTIONS (4)
  - Cerebral haemorrhage [Recovered/Resolved with Sequelae]
  - Lethargy [Recovered/Resolved with Sequelae]
  - Hemiparesis [Recovered/Resolved with Sequelae]
  - Dysarthria [Recovered/Resolved with Sequelae]
